FAERS Safety Report 21551166 (Version 1)
Quarter: 2022Q4

REPORT INFORMATION
  Report Type: Spontaneous
  Country: US (occurrence: None)
  Receive Date: 20221103
  Receipt Date: 20221103
  Transmission Date: 20230112
  Serious: Yes (Hospitalization)
  Sender: FDA-Public Use
  Company Number: None

PATIENT
  Sex: Female

DRUGS (1)
  1. VERZENIO [Suspect]
     Active Substance: ABEMACICLIB
     Indication: Malignant nervous system neoplasm
     Dosage: FREQUENCY : TWICE A DAY;?
     Route: 048
     Dates: start: 20220826

REACTIONS (1)
  - Intervertebral disc protrusion [None]
